FAERS Safety Report 13744897 (Version 1)
Quarter: 2017Q3

REPORT INFORMATION
  Report Type: Spontaneous
  Country: US (occurrence: US)
  Receive Date: 20170711
  Receipt Date: 20170711
  Transmission Date: 20171127
  Serious: Yes (Hospitalization, Disabling, Other)
  Sender: FDA-Public Use
  Company Number: None

PATIENT
  Age: 43 Year
  Sex: Female
  Weight: 73.35 kg

DRUGS (9)
  1. VITAMIN C [Concomitant]
     Active Substance: ASCORBIC ACID
  2. VITAMIN A [Concomitant]
     Active Substance: VITAMIN A
  3. FISH OIL [Concomitant]
     Active Substance: FISH OIL
  4. BLADDER SUPPORT [Concomitant]
  5. REMEROM [Concomitant]
  6. PROBIOTICS [Concomitant]
     Active Substance: PROBIOTICS NOS
  7. KLONOPIN [Suspect]
     Active Substance: CLONAZEPAM
     Indication: PRODUCT USED FOR UNKNOWN INDICATION
     Dosage: ?          QUANTITY:1 TABLET(S);?
     Route: 048
  8. ASWAGANDA [Concomitant]
  9. CQ10 [Concomitant]
     Active Substance: UBIDECARENONE

REACTIONS (8)
  - Drug withdrawal syndrome [None]
  - General physical health deterioration [None]
  - Economic problem [None]
  - Social problem [None]
  - Postural orthostatic tachycardia syndrome [None]
  - Anhedonia [None]
  - Weight decreased [None]
  - Educational problem [None]

NARRATIVE: CASE EVENT DATE: 20070501
